FAERS Safety Report 6052923-8 (Version None)
Quarter: 2009Q1

REPORT INFORMATION
  Report Type: 
  Country: None (occurrence: None)
  Receive Date: 20090127
  Receipt Date: 20090119
  Transmission Date: 20090719
  Serious: Yes (Other)
  Sender: FDA-Public Use
  Company Number: CL-JNJFOC-20090104889

PATIENT
  Age: 40 Year
  Sex: Female

DRUGS (2)
  1. DURAGESIC-100 [Suspect]
     Indication: OVARIAN CANCER
     Route: 062
  2. CLONAZEPAM [Concomitant]
     Route: 065

REACTIONS (4)
  - DRUG PRESCRIBING ERROR [None]
  - DYSARTHRIA [None]
  - INADEQUATE ANALGESIA [None]
  - INTENTIONAL DRUG MISUSE [None]
